FAERS Safety Report 9009215 (Version 1)
Quarter: 2013Q1

REPORT INFORMATION
  Report Type: Spontaneous
  Country: US (occurrence: US)
  Receive Date: 20130111
  Receipt Date: 20130111
  Transmission Date: 20140127
  Serious: No
  Sender: FDA-Public Use
  Company Number: US-PFIZER INC-2013010800

PATIENT
  Age: 77 Year
  Sex: Female
  Weight: 79.37 kg

DRUGS (9)
  1. ZITHROMAX [Suspect]
  2. CIPROFLOXACIN [Suspect]
     Dosage: UNK
  3. AMOXICILLIN [Suspect]
     Dosage: UNK
  4. MORPHINE SULFATE [Suspect]
     Dosage: UNK
  5. FLAGYL [Suspect]
     Dosage: UNK
  6. LIPITOR [Suspect]
     Dosage: UNK
  7. LISINOPRIL [Suspect]
     Dosage: UNK
  8. BIAXIN [Suspect]
     Dosage: UNK
  9. TYLENOL WITH CODEINE [Suspect]
     Dosage: UNK

REACTIONS (1)
  - Drug hypersensitivity [Unknown]
